FAERS Safety Report 16694981 (Version 1)
Quarter: 2019Q3

REPORT INFORMATION
  Report Type: Report from Study
  Country: US (occurrence: US)
  Receive Date: 20190812
  Receipt Date: 20190812
  Transmission Date: 20191004
  Serious: Yes (Death)
  Sender: FDA-Public Use
  Company Number: US-ACTELION-A-US2019-194140

PATIENT
  Sex: Male

DRUGS (11)
  1. OPSUMIT [Suspect]
     Active Substance: MACITENTAN
     Indication: PULMONARY HYPERTENSION
     Dosage: 10 MG
     Route: 048
  2. ENOXAPARIN SODIUM. [Concomitant]
     Active Substance: ENOXAPARIN SODIUM
  3. CARVEDILOL. [Concomitant]
     Active Substance: CARVEDILOL
  4. DIGOXIN. [Concomitant]
     Active Substance: DIGOXIN
  5. METOLAZONE. [Concomitant]
     Active Substance: METOLAZONE
  6. ELIQUIS [Concomitant]
     Active Substance: APIXABAN
  7. HARVONI [Concomitant]
     Active Substance: LEDIPASVIR\SOFOSBUVIR
  8. SPIRONOLACTONE. [Concomitant]
     Active Substance: SPIRONOLACTONE
  9. LEVOTHYROXINE SODIUM. [Concomitant]
     Active Substance: LEVOTHYROXINE SODIUM
  10. TORSEMIDE. [Concomitant]
     Active Substance: TORSEMIDE
  11. SILDENAFIL CITRATE. [Concomitant]
     Active Substance: SILDENAFIL CITRATE

REACTIONS (1)
  - Death [Fatal]
